FAERS Safety Report 20597314 (Version 2)
Quarter: 2022Q4

REPORT INFORMATION
  Report Type: Spontaneous
  Country: FR (occurrence: FR)
  Receive Date: 20220315
  Receipt Date: 20221206
  Transmission Date: 20230112
  Serious: Yes (Hospitalization)
  Sender: FDA-Public Use
  Company Number: None

PATIENT
  Age: 30 Year
  Sex: Female
  Weight: 56 kg

DRUGS (14)
  1. PROPOFOL [Suspect]
     Active Substance: PROPOFOL
     Indication: General anaesthesia
     Dosage: 10 MICROGRAM, QD, 300MG1X/JR IV DRIP
     Route: 065
     Dates: start: 20211105, end: 20211105
  2. PROPOFOL [Suspect]
     Active Substance: PROPOFOL
     Dosage: 300 MILLIGRAM, QD(300MG1X/J IV DRIP)
     Route: 065
     Dates: start: 20211105, end: 20211105
  3. SUFENTANIL [Suspect]
     Active Substance: SUFENTANIL
     Indication: General anaesthesia
     Dosage: 10 MICROGRAM, QD, 10?G1X/JR, IV DRIP
     Route: 065
     Dates: start: 20211105, end: 20211105
  4. SUFENTANIL [Suspect]
     Active Substance: SUFENTANIL
     Dosage: 10 MICROGRAM, QD(10?G1X/J IV DRIP)
     Route: 065
     Dates: start: 20211105, end: 20211105
  5. ONDANSETRON HYDROCHLORIDE [Suspect]
     Active Substance: ONDANSETRON HYDROCHLORIDE
     Indication: Nausea
     Dosage: 4 MILLIGRAM, QD, 4MG/JR(IV DRIP)
     Route: 065
     Dates: start: 20211105, end: 20211105
  6. ONDANSETRON HYDROCHLORIDE [Suspect]
     Active Substance: ONDANSETRON HYDROCHLORIDE
     Dosage: 4 MILLIGRAM, QD(4MG1X/J,IV DRIP)
     Route: 065
     Dates: start: 20211105, end: 20211105
  7. NOREPINEPHRINE\NOREPINEPHRINE BITARTRATE [Suspect]
     Active Substance: NOREPINEPHRINE\NOREPINEPHRINE BITARTRATE
     Indication: Hypotension
     Dosage: 0.5 MILLIGRAM, QH, 0.5MG/H IV DRIP
     Route: 065
     Dates: start: 20211105, end: 20211105
  8. NOREPINEPHRINE\NOREPINEPHRINE BITARTRATE [Suspect]
     Active Substance: NOREPINEPHRINE\NOREPINEPHRINE BITARTRATE
     Dosage: 0.3 MILLIGRAM, QH(0.3MG/H IV DRIP)
     Route: 065
     Dates: start: 20211105, end: 20211105
  9. ACUPAN [Suspect]
     Active Substance: NEFOPAM HYDROCHLORIDE
     Indication: Pain
     Dosage: 20 MILLIGRAM, QD, 20MG1X/JR IV DRIP
     Route: 065
     Dates: start: 20211105, end: 20211105
  10. ACUPAN [Suspect]
     Active Substance: NEFOPAM HYDROCHLORIDE
     Dosage: 20 MILLIGRAM, QD(20MG1X/JR IV DRIP)
     Route: 065
     Dates: start: 20211105, end: 20211105
  11. EPHEDRINE [Suspect]
     Active Substance: EPHEDRINE
     Indication: Hypotension
     Dosage: 12 MILLIGRAM, QD, 12MG1X/JR IV DRIP
     Route: 065
     Dates: start: 20211105, end: 20211105
  12. EPHEDRINE [Suspect]
     Active Substance: EPHEDRINE
     Dosage: 24 MILLIGRAM, QD(24MG1X/J IV DRIP)
     Route: 065
     Dates: start: 20211105, end: 20211105
  13. DROPERIDOL [Suspect]
     Active Substance: DROPERIDOL
     Indication: Nausea
     Dosage: 1.25 MILLIGRAM, QD, 1.25MG1X/JR IV DRIP
     Route: 065
     Dates: start: 20211105, end: 20211105
  14. DROPERIDOL [Suspect]
     Active Substance: DROPERIDOL
     Dosage: 1.25 MILLIGRAM, QD(1.25MG1X/J IV DRIP)
     Route: 065
     Dates: start: 20211105, end: 20211105

REACTIONS (2)
  - Stress cardiomyopathy [Recovered/Resolved]
  - Troponin increased [Recovered/Resolved]

NARRATIVE: CASE EVENT DATE: 20211105
